FAERS Safety Report 14925285 (Version 2)
Quarter: 2018Q2

REPORT INFORMATION
  Report Type: Report from Study
  Country: MX (occurrence: MX)
  Receive Date: 20180522
  Receipt Date: 20180628
  Transmission Date: 20180711
  Serious: Yes (Other)
  Sender: FDA-Public Use
  Company Number: MX-INCYTE CORPORATION-2018IN004755

PATIENT

DRUGS (2)
  1. DILATREND [Concomitant]
     Active Substance: CARVEDILOL
     Indication: PRODUCT USED FOR UNKNOWN INDICATION
     Dosage: UNK
     Route: 065
  2. JAKAVI [Suspect]
     Active Substance: RUXOLITINIB
     Indication: MYELOFIBROSIS
     Dosage: 15 MG, TID (1 IN THE MORNING AND 1 IN THE NIGHT)
     Route: 048

REACTIONS (7)
  - Dysstasia [Unknown]
  - Productive cough [Unknown]
  - Neuropathy peripheral [Unknown]
  - Lung disorder [Unknown]
  - Renal disorder [Unknown]
  - Coma [Unknown]
  - Cardiac disorder [Unknown]
